FAERS Safety Report 24374527 (Version 1)
Quarter: 2024Q3

REPORT INFORMATION
  Report Type: Spontaneous
  Country: GB (occurrence: GB)
  Receive Date: 20240927
  Receipt Date: 20240927
  Transmission Date: 20241017
  Serious: Yes (Hospitalization, Other)
  Sender: TAKEDA
  Company Number: GB-TAKEDA-2024TUS093696

PATIENT
  Age: 85 Year
  Sex: Male

DRUGS (1)
  1. ENTYVIO [Suspect]
     Active Substance: VEDOLIZUMAB
     Indication: Crohn^s disease
     Dosage: UNK
     Route: 065
     Dates: start: 202309

REACTIONS (9)
  - Lower respiratory tract infection [Unknown]
  - Subdural haematoma [Unknown]
  - Weight decreased [Unknown]
  - Prostatitis [Unknown]
  - COVID-19 [Unknown]
  - Decreased appetite [Unknown]
  - General physical health deterioration [Unknown]
  - Nausea [Unknown]
  - Urinary tract infection [Unknown]

NARRATIVE: CASE EVENT DATE: 20230101
